FAERS Safety Report 13017255 (Version 2)
Quarter: 2016Q4

REPORT INFORMATION
  Report Type: Spontaneous
  Country: FR (occurrence: FR)
  Receive Date: 20161212
  Receipt Date: 20161215
  Transmission Date: 20170207
  Serious: Yes (Hospitalization)
  Sender: FDA-Public Use
  Company Number: FR-ROCHE-1866722

PATIENT
  Age: 95 Year

DRUGS (6)
  1. TENORMIN [Concomitant]
     Active Substance: ATENOLOL
     Dosage: IN EVENING
     Route: 065
  2. PERMIXON [Concomitant]
     Active Substance: SAW PALMETTO
     Route: 065
  3. ELISOR [Concomitant]
     Active Substance: PRAVASTATIN SODIUM
     Dosage: IN EVENING
     Route: 065
  4. LERCAN [Concomitant]
     Active Substance: LERCANIDIPINE
     Dosage: IN MORNING
     Route: 065
  5. INEXIUM [Concomitant]
     Active Substance: ESOMEPRAZOLE
     Route: 065
  6. ERIVEDGE [Suspect]
     Active Substance: VISMODEGIB
     Indication: PRODUCT USED FOR UNKNOWN INDICATION
     Route: 065
     Dates: start: 20161110

REACTIONS (1)
  - Atrioventricular block complete [Unknown]
